FAERS Safety Report 11659095 (Version 2)
Quarter: 2015Q4

REPORT INFORMATION
  Report Type: Spontaneous
  Country: GB (occurrence: GB)
  Receive Date: 20151026
  Receipt Date: 20151120
  Transmission Date: 20160304
  Serious: Yes (Death, Hospitalization)
  Sender: FDA-Public Use
  Company Number: GB-ACCORD-034648

PATIENT
  Age: 78 Year
  Sex: Male
  Weight: 51 kg

DRUGS (2)
  1. MYCOPHENOLIC ACID. [Suspect]
     Active Substance: MYCOPHENOLIC ACID
     Indication: LIVER TRANSPLANT
     Dosage: DOSE REDUCED TO 500 MG ONCE DAILY RECEIVED FROM JAN-2013 TO JAN-2015.
     Route: 048
     Dates: start: 200302, end: 201301
  2. PREDNISOLONE. [Suspect]
     Active Substance: PREDNISOLONE
     Indication: LIVER TRANSPLANT
     Route: 048
     Dates: start: 200302, end: 201501

REACTIONS (3)
  - Abnormal loss of weight [Not Recovered/Not Resolved]
  - Post transplant lymphoproliferative disorder [Fatal]
  - Cytomegalovirus colitis [Not Recovered/Not Resolved]

NARRATIVE: CASE EVENT DATE: 201301
